FAERS Safety Report 8873986 (Version 2)
Quarter: 2012Q4

REPORT INFORMATION
  Report Type: 
  Country: US (occurrence: US)
  Receive Date: 20121030
  Receipt Date: 20121119
  Transmission Date: 20130627
  Serious: Yes (Other)
  Sender: FDA-Public Use
  Company Number: PHHY2012US094892

PATIENT
  Age: 75 Year
  Sex: Female

DRUGS (2)
  1. ASCRIPTIN BUFFERED REG STRENGTH TABLETS [Suspect]
     Dosage: 1 DF, daily
     Route: 048
  2. CYMBALTA [Concomitant]

REACTIONS (2)
  - Breast neoplasm [Recovered/Resolved]
  - Incorrect drug administration duration [Unknown]
